FAERS Safety Report 5772073-5 (Version None)
Quarter: 2008Q2

REPORT INFORMATION
  Report Type: 
  Country: None (occurrence: None)
  Receive Date: 20080612
  Receipt Date: 20080612
  Transmission Date: 20081010
  Serious: Yes (Hospitalization)
  Sender: FDA-Public Use
  Company Number: None

PATIENT
  Age: 78 Year
  Sex: Female
  Weight: 66.6788 kg

DRUGS (12)
  1. ERLOTINIB  150 MG [Suspect]
     Indication: NON-SMALL CELL LUNG CANCER
     Dosage: 150 MG DAILY PO
     Route: 048
     Dates: start: 20080310
  2. BEVACIZUMAB  15 MG/KG [Suspect]
     Indication: NON-SMALL CELL LUNG CANCER
     Dosage: 15 MG/KG EVERY 3 WEEKS IV
     Route: 042
     Dates: start: 20080310, end: 20080421
  3. FENTANYL-100 [Concomitant]
  4. EFFEXOR XR [Concomitant]
  5. DILTIAZEM HCL [Concomitant]
  6. OXYCODEN [Concomitant]
  7. CALCIUM [Concomitant]
  8. FISH OIL [Concomitant]
  9. SENNA [Concomitant]
  10. ZOFRAN [Concomitant]
  11. THIAMINE HCL [Concomitant]
  12. MULTI-VITAMIN [Concomitant]

REACTIONS (6)
  - AGITATION [None]
  - CONFUSIONAL STATE [None]
  - DELUSIONAL DISORDER, PERSECUTORY TYPE [None]
  - DEPRESSION [None]
  - MENTAL DISORDER DUE TO A GENERAL MEDICAL CONDITION [None]
  - MENTAL STATUS CHANGES [None]
